FAERS Safety Report 23745979 (Version 1)
Quarter: 2024Q2

REPORT INFORMATION
  Report Type: Spontaneous
  Country: ES (occurrence: ES)
  Receive Date: 20240416
  Receipt Date: 20240416
  Transmission Date: 20240716
  Serious: Yes (Hospitalization, Other)
  Sender: FDA-Public Use
  Company Number: ES-CELLTRION INC.-2024ES008791

PATIENT

DRUGS (2)
  1. INFLIXIMAB [Interacting]
     Active Substance: INFLIXIMAB
     Indication: Colitis ulcerative
     Dosage: 400 MG, EVERY 28 DAYS
     Route: 042
     Dates: start: 20200811, end: 20201114
  2. AZATHIOPRINE [Interacting]
     Active Substance: AZATHIOPRINE
     Indication: Colitis ulcerative
     Dosage: UNK
     Route: 048
     Dates: start: 202008

REACTIONS (3)
  - Concomitant disease aggravated [Recovered/Resolved]
  - Colitis ulcerative [Recovered/Resolved]
  - COVID-19 [Recovered/Resolved]

NARRATIVE: CASE EVENT DATE: 20200928
